FAERS Safety Report 10986493 (Version 1)
Quarter: 2015Q2

REPORT INFORMATION
  Report Type: Spontaneous
  Country: US (occurrence: None)
  Receive Date: 20150403
  Receipt Date: 20150403
  Transmission Date: 20150821
  Serious: Yes (Disabling)
  Sender: FDA-Public Use
  Company Number: None

PATIENT
  Age: 52 Year
  Sex: Female
  Weight: 61.24 kg

DRUGS (3)
  1. LEVAQUIN [Suspect]
     Active Substance: LEVOFLOXACIN
     Indication: EAR INFECTION
     Dosage: 1 PILL
     Route: 048
     Dates: start: 20150323, end: 20150326
  2. LEVAQUIN [Suspect]
     Active Substance: LEVOFLOXACIN
     Indication: COUGH
     Dosage: 1 PILL
     Route: 048
     Dates: start: 20150323, end: 20150326
  3. VALOCYCLOVIR [Concomitant]

REACTIONS (7)
  - Pain in extremity [None]
  - Muscle spasms [None]
  - Limb discomfort [None]
  - Muscular weakness [None]
  - Arthralgia [None]
  - Muscle tightness [None]
  - Swollen tongue [None]

NARRATIVE: CASE EVENT DATE: 20150323
